FAERS Safety Report 8948486 (Version 2)
Quarter: 2013Q2

REPORT INFORMATION
  Report Type: Spontaneous
  Country: US (occurrence: US)
  Receive Date: 20121206
  Receipt Date: 20130401
  Transmission Date: 20140414
  Serious: Yes (Hospitalization, Other)
  Sender: FDA-Public Use
  Company Number: US-BAYER-2012-126385

PATIENT
  Age: 44 Year
  Sex: Female

DRUGS (5)
  1. YAZ [Suspect]
  2. YASMIN [Suspect]
  3. KEPPRA [Concomitant]
     Indication: CONVULSION PROPHYLAXIS
  4. DECADRON [Concomitant]
  5. CIPROFLOXACIN [Concomitant]
     Indication: URINARY TRACT INFECTION

REACTIONS (6)
  - Cerebrovascular accident [None]
  - Intracranial venous sinus thrombosis [None]
  - Jugular vein thrombosis [None]
  - Injury [None]
  - Pain [None]
  - Pain [None]
